FAERS Safety Report 5530527-0 (Version None)
Quarter: 2007Q4

REPORT INFORMATION
  Report Type: 
  Country: None (occurrence: None)
  Receive Date: 20071130
  Receipt Date: 20071126
  Transmission Date: 20080405
  Serious: Yes (Hospitalization)
  Sender: FDA-Public Use
  Company Number: JP-AVENTIS-200713010JP

PATIENT
  Age: 88 Year
  Sex: Male
  Weight: 49 kg

DRUGS (8)
  1. LASIX [Suspect]
     Route: 048
     Dates: start: 20070915, end: 20071029
  2. ZYLORIC [Suspect]
     Route: 048
     Dates: start: 20070915, end: 20071019
  3. EPOGEN [Suspect]
     Dosage: DOSE: 6000 TO 12000 UNITS
     Route: 058
     Dates: start: 20070930, end: 20071015
  4. DIOVAN [Concomitant]
     Indication: HYPERTENSION
     Route: 048
     Dates: start: 20070914, end: 20071029
  5. ASPIRIN [Concomitant]
     Indication: ANGINA PECTORIS
     Route: 048
     Dates: start: 20070914, end: 20071029
  6. ITOROL [Concomitant]
     Indication: ANGINA PECTORIS
     Route: 048
     Dates: start: 20070914, end: 20071029
  7. FERROMIA                           /00023516/ [Concomitant]
     Route: 048
     Dates: start: 20070914, end: 20071023
  8. ALOSENN                            /00476901/ [Concomitant]
     Indication: CONSTIPATION
     Route: 048
     Dates: start: 20070914

REACTIONS (2)
  - EOSINOPHILIA [None]
  - LIVER DISORDER [None]
